FAERS Safety Report 17042725 (Version 1)
Quarter: 2019Q4

REPORT INFORMATION
  Report Type: Spontaneous
  Country: US (occurrence: US)
  Receive Date: 20191115
  Receipt Date: 20191115
  Transmission Date: 20200122
  Serious: Yes (Disabling)
  Sender: FDA-Public Use
  Company Number: None

PATIENT
  Age: 29 Year
  Sex: Female
  Weight: 85.05 kg

DRUGS (3)
  1. ASSURED ALLERGY RELIEF [Suspect]
     Active Substance: DIPHENHYDRAMINE HYDROCHLORIDE
  2. SPINE DEVICE [Concomitant]
  3. VITAMIN D [Concomitant]
     Active Substance: VITAMIN D NOS

REACTIONS (3)
  - Oral mucosal discolouration [None]
  - Product container issue [None]
  - Oropharyngeal pain [None]

NARRATIVE: CASE EVENT DATE: 20191012
